FAERS Safety Report 19427364 (Version 2)
Quarter: 2021Q3

REPORT INFORMATION
  Report Type: Report from Study
  Country: HK (occurrence: HK)
  Receive Date: 20210616
  Receipt Date: 20210901
  Transmission Date: 20211014
  Serious: Yes (Hospitalization)
  Sender: FDA-Public Use
  Company Number: HK-ROCHE-2848860

PATIENT
  Age: 64 Year
  Sex: Male
  Weight: 56.1 kg

DRUGS (19)
  1. BEVACIZUMAB. [Suspect]
     Active Substance: BEVACIZUMAB
     Indication: HEPATOCELLULAR CARCINOMA
     Dosage: ON 09/MAR/2021, HE RECEIVED HE MOST RECENT DOSE OF BEVACIZUMAB 955.5 MG PRIOR TO AE/SAE ONSET
     Route: 042
     Dates: start: 20181115
  2. FAMOTIDINE. [Concomitant]
     Active Substance: FAMOTIDINE
     Indication: GASTROOESOPHAGEAL REFLUX DISEASE
     Dates: start: 20190521
  3. EXFORGE [Concomitant]
     Active Substance: AMLODIPINE BESYLATE\VALSARTAN
     Indication: HYPERTENSION
     Dates: start: 20200114
  4. HYDROCORTISONE. [Concomitant]
     Active Substance: HYDROCORTISONE
     Indication: ADRENAL INSUFFICIENCY
     Dates: start: 20191002
  5. VALSARTAN. [Concomitant]
     Active Substance: VALSARTAN
  6. LIQUID PARAFFIN;WHITE SOFT PARAFFIN [Concomitant]
     Indication: RASH
     Dates: start: 20201124
  7. FEXOFENADINE [Concomitant]
     Active Substance: FEXOFENADINE HYDROCHLORIDE
     Indication: RASH
     Dates: start: 20210126
  8. FRUSEMIDE [Concomitant]
     Active Substance: FUROSEMIDE
     Indication: OEDEMA PERIPHERAL
     Dates: start: 20210329, end: 20210401
  9. ELOMET [Concomitant]
     Active Substance: MOMETASONE FUROATE
     Indication: RASH
     Dates: start: 20210126
  10. NORVASC [Concomitant]
     Active Substance: AMLODIPINE BESYLATE
     Indication: HYPERTENSION
     Dates: start: 20200225
  11. ENTECAVIR. [Concomitant]
     Active Substance: ENTECAVIR
     Indication: HEPATITIS B
     Dates: start: 20180905
  12. EMULSIFYING OINTMENT [Concomitant]
     Indication: RASH
     Dates: start: 20210126
  13. PARACETAMOL [Concomitant]
     Active Substance: ACETAMINOPHEN
     Indication: PAIN
     Dates: start: 20210329
  14. THYROXINE SODIUM [Concomitant]
     Active Substance: LEVOTHYROXINE SODIUM
     Indication: HYPERTHYROIDISM
     Dates: start: 20190614
  15. ATEZOLIZUMAB. [Suspect]
     Active Substance: ATEZOLIZUMAB
     Indication: HEPATOCELLULAR CARCINOMA
     Dosage: ON 09/MAR/2021, HE RECEIVED HE MOST RECENT DOSE OF ATEZOLIZUMAB 1200 MG PRIOR TO AE/SAE ONSET
     Route: 042
     Dates: start: 20181115
  16. ANUSOL (HONG KONG) [Concomitant]
     Indication: HAEMORRHOIDS
     Dates: start: 20201124
  17. PIRITON [Concomitant]
     Active Substance: CHLORPHENIRAMINE MALEATE
     Dates: start: 20201014
  18. SYNALAR [Concomitant]
     Active Substance: FLUOCINOLONE ACETONIDE
     Indication: PRURITUS
     Dates: start: 20210105
  19. LACTULOSE. [Concomitant]
     Active Substance: LACTULOSE
     Dates: start: 20201124

REACTIONS (1)
  - Scrotal dermatitis [Not Recovered/Not Resolved]

NARRATIVE: CASE EVENT DATE: 20210329
